FAERS Safety Report 7275940-9 (Version None)
Quarter: 2011Q1

REPORT INFORMATION
  Report Type: 
  Country: None (occurrence: None)
  Receive Date: 20110204
  Receipt Date: 20110125
  Transmission Date: 20110831
  Serious: Yes (Hospitalization)
  Sender: FDA-Public Use
  Company Number: A0905533A

PATIENT
  Age: 72 Year
  Sex: Male
  Weight: 102.6 kg

DRUGS (6)
  1. CAPECITABINE [Suspect]
     Indication: NEOPLASM
     Dosage: 20000MGM2 TWICE PER DAY
     Route: 048
     Dates: start: 20100915
  2. LEUCOVORIN CALCIUM [Concomitant]
     Dosage: 422MG EVERY TWO WEEKS
     Route: 042
     Dates: start: 20100831
  3. 5 FU [Concomitant]
     Dosage: 506MG EVERY TWO WEEKS
     Route: 040
     Dates: start: 20100831
  4. LAPATINIB [Suspect]
     Indication: NEOPLASM
     Dosage: 1250MG PER DAY
     Route: 048
     Dates: start: 20100915
  5. IRINOTECAN HCL [Concomitant]
     Dosage: 182MG EVERY TWO WEEKS
     Route: 042
     Dates: start: 20100831
  6. 5 FU [Concomitant]
     Dosage: 760MG EVERY TWO WEEKS
     Route: 042
     Dates: start: 20100831

REACTIONS (1)
  - HAEMATEMESIS [None]
